FAERS Safety Report 7986402-5 (Version None)
Quarter: 2011Q4

REPORT INFORMATION
  Report Type: 
  Country: None (occurrence: None)
  Receive Date: 20111216
  Receipt Date: 20110811
  Transmission Date: 20120403
  Serious: No
  Sender: FDA-Public Use
  Company Number: US-GLAXOSMITHKLINE-A0941396A

PATIENT
  Sex: Female
  Weight: 43.2 kg

DRUGS (2)
  1. COREG CR [Suspect]
     Indication: CARDIAC FAILURE CONGESTIVE
     Dosage: 10MG PER DAY
     Route: 048
     Dates: start: 20110810
  2. ATIVAN [Concomitant]

REACTIONS (1)
  - FEELING ABNORMAL [None]
